FAERS Safety Report 7528508-0 (Version None)
Quarter: 2011Q2

REPORT INFORMATION
  Report Type: 
  Country: None (occurrence: None)
  Receive Date: 20110607
  Receipt Date: 20100913
  Transmission Date: 20111010
  Serious: No
  Sender: FDA-Public Use
  Company Number: US-ASTRAZENECA-2010SE43628

PATIENT
  Sex: Female

DRUGS (2)
  1. PRILOSEC OTC [Suspect]
     Route: 048
  2. NOSE SPRAY FOR OSTEO [Concomitant]
     Indication: BONE DISORDER
     Dosage: UNKNOWN

REACTIONS (2)
  - DIARRHOEA [None]
  - EXPIRED DRUG ADMINISTERED [None]
